FAERS Safety Report 19674676 (Version 2)
Quarter: 2022Q1

REPORT INFORMATION
  Report Type: Report from Study
  Country: PE (occurrence: PE)
  Receive Date: 20210809
  Receipt Date: 20220208
  Transmission Date: 20220423
  Serious: Yes (Death, Other)
  Sender: FDA-Public Use
  Company Number: PE-BAYER-2021-184535

PATIENT
  Age: 76 Year
  Sex: Male

DRUGS (4)
  1. NEXAVAR [Suspect]
     Active Substance: SORAFENIB
     Indication: Hepatocellular carcinoma
     Dosage: 400 MG
     Route: 048
     Dates: start: 20201210
  2. NEXAVAR [Suspect]
     Active Substance: SORAFENIB
     Indication: Hepatocellular carcinoma
     Dosage: 400 MG, QD
     Route: 048
     Dates: start: 20201108, end: 20210528
  3. NEXAVAR [Suspect]
     Active Substance: SORAFENIB
     Indication: Hepatocellular carcinoma
     Dosage: 400 MG, BID
     Route: 048
  4. NEXAVAR [Suspect]
     Active Substance: SORAFENIB
     Indication: Hepatocellular carcinoma
     Dosage: 400 MG PER DAY
     Route: 048
     Dates: start: 20211108, end: 20220124

REACTIONS (3)
  - Hepatocellular carcinoma [Fatal]
  - Metastases to spine [None]
  - Off label use [None]

NARRATIVE: CASE EVENT DATE: 20201210
